FAERS Safety Report 8877689 (Version 1)
Quarter: 2012Q4

REPORT INFORMATION
  Report Type: 
  Country: US (occurrence: US)
  Receive Date: 20121024
  Receipt Date: 20121024
  Transmission Date: 20130627
  Serious: Yes (Other)
  Sender: FDA-Public Use
  Company Number: PHEH2012US020668

PATIENT
  Sex: Female

DRUGS (5)
  1. EXFORGE [Suspect]
     Dosage: 1 DF (160mg vals/5mg amlo), QD
     Route: 048
     Dates: start: 20121015
  2. ATENOLOL [Concomitant]
     Dosage: 50 mg, BID
  3. JANUVIA [Concomitant]
  4. ATORVASTATIN [Concomitant]
  5. LEVOTHYROXINE [Concomitant]

REACTIONS (3)
  - Diabetes mellitus [Unknown]
  - Confusional state [Unknown]
  - Blood pressure fluctuation [Unknown]
